FAERS Safety Report 23456112 (Version 5)
Quarter: 2024Q3

REPORT INFORMATION
  Report Type: Spontaneous
  Country: DE (occurrence: DE)
  Receive Date: 20240130
  Receipt Date: 20240904
  Transmission Date: 20241016
  Serious: Yes (Hospitalization)
  Sender: SAMSUNG BIOEPIS
  Company Number: DE-SAMSUNG BIOEPIS-SB-2024-02901

PATIENT
  Age: 74 Year
  Sex: Female
  Weight: 75 kg

DRUGS (12)
  1. ONTRUZANT [Suspect]
     Active Substance: TRASTUZUMAB-DTTB
     Indication: Oesophageal adenocarcinoma
     Dosage: D1: 8 MG/KG, IV; 6 MG/KG IV D22/D43 PRE-AND POST OP, AFTERWARDS 6 MG/KG IV D1 Q8W
     Route: 042
     Dates: start: 20240115
  2. ONTRUZANT [Suspect]
     Active Substance: TRASTUZUMAB-DTTB
     Dosage: D1: 8 MG/KG, IV; 6 MG/KG IV D22/D43 PRE-AND POST OP, AFTERWARDS 6 MG/KG IV D1 Q8W
     Route: 042
     Dates: start: 20240606
  3. PEMBROLIZUMAB [Suspect]
     Active Substance: PEMBROLIZUMAB
     Indication: Oesophageal adenocarcinoma
     Dosage: 200 MG FLAT DOSE, IV, D1/D22/D43 PRE-AND POST OP, AFTERWARDS D1 Q3W
     Route: 042
     Dates: start: 20240115
  4. PEMBROLIZUMAB [Suspect]
     Active Substance: PEMBROLIZUMAB
     Dosage: 200 MG FLAT DOSE, IV, D1/D22/D43 PRE-AND POST OP, AFTERWARDS D1 Q3W
     Route: 042
     Dates: start: 20240606
  5. OXALIPLATIN [Suspect]
     Active Substance: OXALIPLATIN
     Indication: Oesophageal adenocarcinoma
     Dosage: 85 MG/M 2, IV, D1/D15/D29 AND D43 PRE-AND POST OP
     Route: 042
     Dates: start: 20240115
  6. OXALIPLATIN [Suspect]
     Active Substance: OXALIPLATIN
     Dosage: 85 MG/M 2, IV, D1/D15/D29 AND D43 PRE-AND POST OP
     Route: 042
     Dates: start: 20240606
  7. LEUCOVORIN [Suspect]
     Active Substance: LEUCOVORIN\LEUCOVORIN CALCIUM
     Indication: Oesophageal adenocarcinoma
     Dosage: 200 MG/M 2, IV, D1/D15/D29 AND D43 PRE-AND POST OP
     Route: 042
     Dates: start: 20240115
  8. LEUCOVORIN [Suspect]
     Active Substance: LEUCOVORIN\LEUCOVORIN CALCIUM
     Dosage: 200 MG/M 2, IV, D1/D15/D29 AND D43 PRE-AND POST OP
     Route: 042
     Dates: start: 20240606
  9. FLUOROURACIL [Suspect]
     Active Substance: FLUOROURACIL
     Indication: Oesophageal adenocarcinoma
     Dosage: 2600 MG/M 2, IV, D1/D15/D29 AND D43 PRE-AND POST OP
     Route: 042
     Dates: start: 20240115
  10. FLUOROURACIL [Suspect]
     Active Substance: FLUOROURACIL
     Dosage: 2600 MG/M 2, IV, D1/D15/D29 AND D43 PRE-AND POST OP
     Route: 042
     Dates: start: 20240606
  11. DOCETAXEL [Suspect]
     Active Substance: DOCETAXEL\DOCETAXEL ANHYDROUS
     Indication: Oesophageal adenocarcinoma
     Dosage: 50 MG/M 2, IV, D1/D15/D29 AND D43 PRE-AND POST OP
     Route: 042
     Dates: start: 20240115
  12. DOCETAXEL [Suspect]
     Active Substance: DOCETAXEL\DOCETAXEL ANHYDROUS
     Dosage: 50 MG/M 2, IV, D1/D15/D29 AND D43 PRE-AND POST OP
     Route: 042
     Dates: start: 20240606

REACTIONS (2)
  - Diarrhoea [Recovered/Resolved]
  - Product use in unapproved indication [Unknown]

NARRATIVE: CASE EVENT DATE: 20240118
